FAERS Safety Report 9480649 (Version 1)
Quarter: 2013Q3

REPORT INFORMATION
  Report Type: Spontaneous
  Country: US (occurrence: US)
  Receive Date: 20130828
  Receipt Date: 20130828
  Transmission Date: 20140515
  Serious: Yes (Death, Hospitalization)
  Sender: FDA-Public Use
  Company Number: US-AMGEN-KDL108743

PATIENT
  Age: 76 Year
  Sex: Male

DRUGS (2)
  1. ENBREL [Suspect]
     Indication: RHEUMATOID ARTHRITIS
     Dosage: 25 MG, 2 TIMES/WK
     Route: 065
  2. PREDNISONE [Concomitant]
     Dosage: 20 MG, QD

REACTIONS (4)
  - Death [Fatal]
  - Pulmonary fibrosis [Unknown]
  - Lymphadenopathy [Unknown]
  - Pyrexia [Unknown]
